FAERS Safety Report 20020632 (Version 1)
Quarter: 2021Q4

REPORT INFORMATION
  Report Type: Spontaneous
  Country: NL (occurrence: NL)
  Receive Date: 20211101
  Receipt Date: 20211101
  Transmission Date: 20220303
  Serious: Yes (Other)
  Sender: FDA-Public Use
  Company Number: NL-SEBELA IRELAND LIMITED-2021SEB00123

PATIENT
  Sex: Male

DRUGS (1)
  1. AZATHIOPRINE [Suspect]
     Active Substance: AZATHIOPRINE
     Indication: Inflammatory bowel disease
     Dosage: 75 MG, 1X/DAY
     Route: 064

REACTIONS (2)
  - Lymphopenia [Recovered/Resolved]
  - Combined immunodeficiency [Recovered/Resolved]
